FAERS Safety Report 4628255-9 (Version None)
Quarter: 2005Q2

REPORT INFORMATION
  Report Type: 
  Country: None (occurrence: None)
  Receive Date: 20050406
  Receipt Date: 20011218
  Transmission Date: 20051028
  Serious: Yes (Death, Hospitalization)
  Sender: FDA-Public Use
  Company Number: US-NOVOPROD-212776

PATIENT
  Age: 44 Year
  Sex: Male

DRUGS (2)
  1. NOVOSEVEN [Suspect]
     Indication: COAGULOPATHY
     Dosage: 90 UG/KG, TID
     Route: 042
     Dates: start: 20011209, end: 20011209
  2. RED BLOOD CELLS [Concomitant]
     Dosage: 1 U, Q1H X 4DAYS

REACTIONS (2)
  - HAEMORRHAGE [None]
  - THERAPEUTIC RESPONSE DECREASED [None]
